FAERS Safety Report 6523456-7 (Version None)
Quarter: 2009Q4

REPORT INFORMATION
  Report Type: 
  Country: None (occurrence: None)
  Receive Date: 20091231
  Receipt Date: 20091225
  Transmission Date: 20100525
  Serious: Yes (Other)
  Sender: FDA-Public Use
  Company Number: JP-ASTRAZENECA-2009SE31001

PATIENT
  Age: 5222 Day
  Sex: Male

DRUGS (5)
  1. MEROPEN [Suspect]
     Indication: SERRATIA INFECTION
     Route: 041
     Dates: start: 20091113, end: 20091123
  2. MEROPEN [Suspect]
     Indication: PNEUMONIA BACTERIAL
     Route: 041
     Dates: start: 20091113, end: 20091123
  3. DEPAKENE [Concomitant]
     Route: 048
  4. GASTER [Concomitant]
  5. RECOMODULIN [Concomitant]
     Route: 041

REACTIONS (1)
  - PANCYTOPENIA [None]
